FAERS Safety Report 23829013 (Version 3)
Quarter: 2024Q3

REPORT INFORMATION
  Report Type: Spontaneous
  Country: JP (occurrence: JP)
  Receive Date: 20240508
  Receipt Date: 20240701
  Transmission Date: 20241016
  Serious: No
  Sender: BRISTOL MYERS SQUIBB
  Company Number: JP-BRISTOL-MYERS SQUIBB COMPANY-2024-067879

PATIENT
  Age: 94 Year
  Sex: Male

DRUGS (7)
  1. ELIQUIS [Suspect]
     Active Substance: APIXABAN
     Indication: Product used for unknown indication
     Dosage: ORAL, 2 TABLETS/DAY (1 TABLET 2X/DAY), AFTER BREAKFAST AND ?AFTER DINNER
     Route: 048
     Dates: start: 20160105, end: 20240219
  2. ELIQUIS [Suspect]
     Active Substance: APIXABAN
     Dosage: ORAL, 1 TABLETS/DAY (1 TABLET 1X/DAY), AFTER  BREAKFAST.
     Route: 048
     Dates: start: 20240325
  3. ISOSORBIDE MONONITRATE [Concomitant]
     Active Substance: ISOSORBIDE MONONITRATE
     Indication: Product used for unknown indication
     Dosage: (20MG 2X/DAY, AFTER BREAKFAST AND AFTER DINNER).?SAWAI
  4. VALSARTAN [Concomitant]
     Active Substance: VALSARTAN
     Indication: Product used for unknown indication
     Dosage: (40MG 1X/DAY, AFTER BREAKFAST)?SAWAI
  5. NORVASC [Concomitant]
     Active Substance: AMLODIPINE BESYLATE
     Indication: Product used for unknown indication
     Dosage: 5MG/DAY (5MG 1X/DAY, AFTER BREAKFAST)
  6. TOPIROXOSTAT [Concomitant]
     Active Substance: TOPIROXOSTAT
     Indication: Product used for unknown indication
     Dosage: (20MG 2X/DAY, AFTER BREAKFAST AND AFTER DINNER).?SAWAI
  7. RUPAFIN [Concomitant]
     Active Substance: RUPATADINE FUMARATE
     Indication: Product used for unknown indication
     Dosage: (10MG 1X/DAY, AFTER DINNER)

REACTIONS (1)
  - Off label use [Unknown]

NARRATIVE: CASE EVENT DATE: 20240325
